FAERS Safety Report 5331338-1 (Version None)
Quarter: 2007Q2

REPORT INFORMATION
  Report Type: 
  Country: None (occurrence: None)
  Receive Date: 20070522
  Receipt Date: 20070511
  Transmission Date: 20071010
  Serious: Yes (Other)
  Sender: FDA-Public Use
  Company Number: GB-BAYER-RCH-363758

PATIENT
  Sex: Male
  Weight: 4.6 kg

DRUGS (5)
  1. ACETYLSALICYLIC ACID SRT [Suspect]
     Indication: FALLOT'S TETRALOGY
     Route: 065
  2. SPIRONOLACTONE [Interacting]
     Indication: FALLOT'S TETRALOGY
     Route: 065
  3. DIAZOXIDE [Interacting]
     Indication: HYPOGLYCAEMIA
     Route: 065
  4. DIAZOXIDE [Interacting]
     Route: 065
  5. FRUSEMIDE [Interacting]
     Indication: FALLOT'S TETRALOGY
     Route: 065

REACTIONS (2)
  - DRUG INTERACTION [None]
  - HYPERGLYCAEMIA [None]
